FAERS Safety Report 16902937 (Version 1)
Quarter: 2019Q4

REPORT INFORMATION
  Report Type: Spontaneous
  Country: IN (occurrence: IN)
  Receive Date: 20191010
  Receipt Date: 20191010
  Transmission Date: 20200122
  Serious: Yes (Death, Hospitalization)
  Sender: FDA-Public Use
  Company Number: IN-MYLANLABS-2019M1094218

PATIENT
  Age: 6 Year
  Sex: Female

DRUGS (3)
  1. TACROLIMUS. [Suspect]
     Active Substance: TACROLIMUS
     Indication: IMMUNOSUPPRESSANT DRUG THERAPY
     Route: 065
  2. RITUXIMAB. [Suspect]
     Active Substance: RITUXIMAB
     Indication: POST TRANSPLANT LYMPHOPROLIFERATIVE DISORDER
     Dosage: ONE DOSE
     Route: 065
  3. MYCOPHENOLATE MOFETIL. [Suspect]
     Active Substance: MYCOPHENOLATE MOFETIL
     Indication: IMMUNOSUPPRESSANT DRUG THERAPY
     Route: 065

REACTIONS (12)
  - Graft loss [Fatal]
  - Liver abscess [Recovered/Resolved]
  - Cholangitis infective [Fatal]
  - Cholestasis [Unknown]
  - Anaemia [Unknown]
  - Portal hypertension [Unknown]
  - Hepatosplenomegaly [Unknown]
  - Klebsiella infection [Unknown]
  - Biliary fistula [Unknown]
  - Fascioliasis [Fatal]
  - Septic shock [Fatal]
  - Hepatic function abnormal [Unknown]
